FAERS Safety Report 8799708 (Version 1)
Quarter: 2012Q4

REPORT INFORMATION
  Report Type: Spontaneous
  Country: US (occurrence: None)
  Receive Date: 20120918
  Receipt Date: 20120918
  Transmission Date: 20130627
  Serious: No
  Sender: FDA-Public Use
  Company Number: None

PATIENT
  Age: 66 Year
  Sex: Male
  Weight: 67.3 kg

DRUGS (1)
  1. TELAPREVIR [Suspect]
     Route: 048
     Dates: start: 20120419, end: 20120503

REACTIONS (1)
  - Nausea [None]
